FAERS Safety Report 6515899-2 (Version None)
Quarter: 2009Q4

REPORT INFORMATION
  Report Type: 
  Country: None (occurrence: None)
  Receive Date: 20091223
  Receipt Date: 20091214
  Transmission Date: 20100525
  Serious: Yes (Death, Other)
  Sender: FDA-Public Use
  Company Number: US-SANOFI-AVENTIS-2009SA007220

PATIENT
  Age: 60 Year
  Sex: Female

DRUGS (2)
  1. MULTAQ [Suspect]
     Route: 048
     Dates: start: 20091113, end: 20091201
  2. VANCOMYCIN [Suspect]
     Indication: DEVICE RELATED SEPSIS
     Route: 065
     Dates: start: 20091101

REACTIONS (4)
  - EXFOLIATIVE RASH [None]
  - HYPOTENSION [None]
  - SEPSIS [None]
  - STEVENS-JOHNSON SYNDROME [None]
